FAERS Safety Report 9211449 (Version 1)
Quarter: 2013Q2

REPORT INFORMATION
  Report Type: Spontaneous
  Country: US (occurrence: US)
  Receive Date: 20130404
  Receipt Date: 20130404
  Transmission Date: 20140414
  Serious: No
  Sender: FDA-Public Use
  Company Number: US-AMGEN-USASP2013016065

PATIENT
  Age: 70 Year
  Sex: Male

DRUGS (4)
  1. ENBREL [Suspect]
     Indication: RHEUMATOID ARTHRITIS
     Dosage: 50 MG, QWK
     Dates: start: 200702
  2. IMURAN                             /00001501/ [Concomitant]
     Dosage: 50 MG, QD
     Route: 048
     Dates: start: 2009
  3. ORENCIA [Concomitant]
     Dosage: UNK
  4. REMICADE [Concomitant]
     Dosage: UNK

REACTIONS (3)
  - Arthralgia [Recovered/Resolved]
  - Respiratory tract congestion [Not Recovered/Not Resolved]
  - Nasopharyngitis [Not Recovered/Not Resolved]
